FAERS Safety Report 8515195-8 (Version None)
Quarter: 2012Q3

REPORT INFORMATION
  Report Type: 
  Country: None (occurrence: None)
  Receive Date: 20120717
  Receipt Date: 20120706
  Transmission Date: 20120928
  Serious: Yes (Life-Threatening)
  Sender: FDA-Public Use
  Company Number: FR-VIIV HEALTHCARE LIMITED-B0813124A

PATIENT
  Sex: Male
  Weight: 4.7 kg

DRUGS (4)
  1. ABACAVIR SULFATE/LAMIVUDINE [Suspect]
     Indication: PROPHYLAXIS
     Route: 064
     Dates: start: 20110101, end: 20120626
  2. KALETRA [Suspect]
     Indication: PROPHYLAXIS
     Route: 064
     Dates: start: 20110101, end: 20120626
  3. RETROVIR [Suspect]
     Route: 065
     Dates: start: 20120626, end: 20120629
  4. RETROVIR [Suspect]
     Indication: PROPHYLAXIS
     Route: 064
     Dates: start: 20120626, end: 20120626

REACTIONS (12)
  - RENAL FAILURE [None]
  - LACTIC ACIDOSIS [None]
  - APPARENT DEATH [None]
  - THROMBOCYTOPENIA [None]
  - LEUKOPENIA [None]
  - RASH ERYTHEMATOUS [None]
  - TACHYCARDIA [None]
  - HYPOTHERMIA [None]
  - FOETAL DISTRESS SYNDROME [None]
  - FOETAL EXPOSURE DURING PREGNANCY [None]
  - ANAEMIA [None]
  - ELECTROENCEPHALOGRAM ABNORMAL [None]
